FAERS Safety Report 8902328 (Version 2)
Quarter: 2012Q4

REPORT INFORMATION
  Report Type: 
  Country: US (occurrence: US)
  Receive Date: 20121112
  Receipt Date: 20121126
  Transmission Date: 20130627
  Serious: Yes (Disabling, Other)
  Sender: FDA-Public Use
  Company Number: US-ASTELLAS-2012US010014

PATIENT
  Sex: Male

DRUGS (12)
  1. VESICARE [Suspect]
     Indication: BLADDER DISORDER
     Dosage: 5 mg, Unknown/D
     Route: 048
  2. VESICARE [Suspect]
     Dosage: 5 mg, Unknown/D
     Route: 048
  3. VESICARE [Suspect]
     Dosage: UNK
     Route: 048
     Dates: start: 20121030
  4. VESICARE [Suspect]
     Dosage: UNK
     Dates: start: 201211
  5. DETROL [Suspect]
     Indication: BLADDER DISORDER
     Dosage: UNK
     Route: 065
  6. ACTOS [Concomitant]
     Indication: GLUCOSE TOLERANCE IMPAIRED
     Dosage: UNK
     Route: 065
  7. AVANDIA [Concomitant]
     Indication: GLUCOSE TOLERANCE IMPAIRED
     Dosage: UNK
     Route: 065
  8. METFORMIN [Concomitant]
     Indication: GLUCOSE TOLERANCE IMPAIRED
     Dosage: UNK
     Route: 065
  9. GABAPENTIN [Concomitant]
     Indication: PRODUCT USED FOR UNKNOWN INDICATION
     Dosage: UNK
     Route: 065
  10. PRAVASTATIN [Concomitant]
     Indication: PRODUCT USED FOR UNKNOWN INDICATION
     Dosage: UNK
     Route: 065
  11. ATENOLOL [Concomitant]
     Indication: PRODUCT USED FOR UNKNOWN INDICATION
     Dosage: UNK
     Route: 065
  12. ZETIA [Concomitant]
     Indication: PRODUCT USED FOR UNKNOWN INDICATION
     Dosage: UNK
     Route: 065

REACTIONS (7)
  - Drug ineffective [Unknown]
  - Genital hypoaesthesia [Unknown]
  - Circumcised [Unknown]
  - Dysphagia [Unknown]
  - Dry throat [Unknown]
  - Vision blurred [Unknown]
  - Condition aggravated [Recovering/Resolving]
